FAERS Safety Report 16304153 (Version 1)
Quarter: 2019Q2

REPORT INFORMATION
  Report Type: Spontaneous
  Country: US (occurrence: US)
  Receive Date: 20190513
  Receipt Date: 20190513
  Transmission Date: 20190711
  Serious: Yes (Other)
  Sender: FDA-Public Use
  Company Number: US-ASTRAZENECA-2019SE68943

PATIENT

DRUGS (2)
  1. FASLODEX [Suspect]
     Active Substance: FULVESTRANT
     Route: 030
  2. IBRANCE [Suspect]
     Active Substance: PALBOCICLIB
     Indication: BREAST CANCER
     Dosage: 125 MG DAILY, FOR 21 DAYS OF 28 DAY CYCLE
     Route: 048
     Dates: start: 20190408

REACTIONS (4)
  - Leukopenia [Unknown]
  - Fatigue [Unknown]
  - Anaemia [Unknown]
  - Injection site pruritus [Unknown]
